FAERS Safety Report 12434816 (Version 2)
Quarter: 2017Q3

REPORT INFORMATION
  Report Type: Spontaneous
  Country: US (occurrence: US)
  Receive Date: 20160603
  Receipt Date: 20170814
  Transmission Date: 20171127
  Serious: No
  Sender: FDA-Public Use
  Company Number: US-ROCHE-1695949

PATIENT
  Sex: Female
  Weight: 59 kg

DRUGS (7)
  1. COFFEE [Concomitant]
     Active Substance: ARABICA COFFEE BEAN\COFFEE BEAN
     Dosage: 4 OZ
     Route: 048
     Dates: start: 20150929
  2. PREDNISONE. [Concomitant]
     Active Substance: PREDNISONE
     Indication: RHEUMATOID ARTHRITIS
     Route: 048
     Dates: start: 20151218, end: 20151225
  3. FISH OIL [Concomitant]
     Active Substance: FISH OIL
     Dosage: 1 PILL
     Route: 048
     Dates: start: 20151026
  4. WINE [Concomitant]
     Active Substance: WINE
     Dosage: 1 SERVIN
     Route: 048
     Dates: start: 20150929, end: 20151026
  5. TYLENOL EXTRA STRENGTH [Concomitant]
     Active Substance: ACETAMINOPHEN
     Dosage: PRN
     Route: 048
     Dates: start: 20150929
  6. ACTEMRA [Suspect]
     Active Substance: TOCILIZUMAB
     Indication: RHEUMATOID ARTHRITIS
     Dosage: 1.3 MONTH, 1 SHOT
     Route: 065
     Dates: start: 20150929, end: 20151017
  7. DHA [Concomitant]
     Active Substance: DIETARY SUPPLEMENT
     Dosage: 1 PILL
     Route: 048
     Dates: start: 20151026

REACTIONS (1)
  - Pregnancy [Unknown]
